FAERS Safety Report 25270134 (Version 2)
Quarter: 2025Q2

REPORT INFORMATION
  Report Type: Spontaneous
  Country: BR (occurrence: BR)
  Receive Date: 20250505
  Receipt Date: 20250624
  Transmission Date: 20250717
  Serious: Yes (Other)
  Sender: NOVARTIS
  Company Number: BR-002147023-NVSC2025BR072090

PATIENT
  Sex: Female
  Weight: 97 kg

DRUGS (2)
  1. TRAMETINIB [Suspect]
     Active Substance: TRAMETINIB
     Indication: Product used for unknown indication
     Dosage: 2 MG, QD (1 TABLET)
     Route: 065
     Dates: start: 20241017
  2. DABRAFENIB [Suspect]
     Active Substance: DABRAFENIB
     Indication: Product used for unknown indication
     Dosage: 150 MG (2 CPS OF 75 MG) (TWICE A DAY)
     Route: 065
     Dates: start: 20241017

REACTIONS (5)
  - Uveitis [Unknown]
  - Macular oedema [Unknown]
  - Ocular toxicity [Unknown]
  - Retinal disorder [Unknown]
  - Condition aggravated [Unknown]
